FAERS Safety Report 24869269 (Version 2)
Quarter: 2025Q1

REPORT INFORMATION
  Report Type: Spontaneous
  Country: US (occurrence: US)
  Receive Date: 20250121
  Receipt Date: 20250129
  Transmission Date: 20250409
  Serious: Yes (Hospitalization)
  Sender: SMITH AND NEPHEW
  Company Number: US-SMITH AND NEPHEW, INC-2024SMT00052

PATIENT
  Age: 81 Year
  Sex: Male

DRUGS (2)
  1. REGRANEX [Suspect]
     Active Substance: BECAPLERMIN
     Indication: Penis disorder
     Route: 061
     Dates: start: 2018, end: 20241202
  2. REGRANEX [Suspect]
     Active Substance: BECAPLERMIN
     Indication: Skin disorder
     Route: 061

REACTIONS (6)
  - Haematoma [Unknown]
  - Tooth disorder [Recovered/Resolved]
  - Gastrointestinal disorder [Not Recovered/Not Resolved]
  - Fall [Unknown]
  - Accidental exposure to product [Recovered/Resolved]
  - Off label use [Not Recovered/Not Resolved]

NARRATIVE: CASE EVENT DATE: 20180101
